FAERS Safety Report 5526061-4 (Version None)
Quarter: 2007Q4

REPORT INFORMATION
  Report Type: 
  Country: None (occurrence: None)
  Receive Date: 20071120
  Receipt Date: 20070103
  Transmission Date: 20080405
  Serious: No
  Sender: FDA-Public Use
  Company Number: US-1160205

PATIENT
  Sex: Male

DRUGS (1)
  1. MAXITROL [Suspect]
     Dosage: OPHTHALMIC
     Route: 047

REACTIONS (3)
  - EYE PRURITUS [None]
  - FOREIGN BODY SENSATION IN EYES [None]
  - LACRIMATION INCREASED [None]
